FAERS Safety Report 23696406 (Version 2)
Quarter: 2024Q2

REPORT INFORMATION
  Report Type: Report from Study
  Country: US (occurrence: US)
  Receive Date: 20240402
  Receipt Date: 20240507
  Transmission Date: 20240715
  Serious: Yes (Other)
  Sender: FDA-Public Use
  Company Number: US-BAUSCH-BL-2023-015162

PATIENT
  Age: 59 Year
  Sex: Female
  Weight: 106.24 kg

DRUGS (1)
  1. SILIQ [Suspect]
     Active Substance: BRODALUMAB
     Indication: Psoriasis
     Dosage: 210MG/1.5 ML INJECT 210MG SUBCUTANEOUSLY AT WEEKS 0,1, AND 2 AS DIRECTED
     Route: 058
     Dates: start: 202309

REACTIONS (2)
  - Carpal tunnel decompression [Unknown]
  - Psoriasis [Unknown]
